FAERS Safety Report 5069037-6 (Version None)
Quarter: 2006Q3

REPORT INFORMATION
  Report Type: 
  Country: None (occurrence: None)
  Receive Date: 20060728
  Receipt Date: 20060725
  Transmission Date: 20061208
  Serious: Yes (Other)
  Sender: FDA-Public Use
  Company Number: 14449

PATIENT
  Age: 52 Year
  Sex: Female
  Weight: 86.9 kg

DRUGS (4)
  1. METHYLENE BLUE [Suspect]
     Indication: PARATHYROIDECTOMY
     Dosage: 7.5 MG/KG
  2. MEBEVERINE [Concomitant]
  3. VENLAFAXINE HCL [Concomitant]
  4. FERROUS SULFATE TAB [Concomitant]

REACTIONS (8)
  - APHASIA [None]
  - BLOOD CALCIUM DECREASED [None]
  - BLOOD GLUCOSE INCREASED [None]
  - CONFUSIONAL STATE [None]
  - DELAYED RECOVERY FROM ANAESTHESIA [None]
  - DRUG TOXICITY [None]
  - NYSTAGMUS [None]
  - WHITE BLOOD CELL COUNT INCREASED [None]
